FAERS Safety Report 16493157 (Version 4)
Quarter: 2019Q2

REPORT INFORMATION
  Report Type: Spontaneous
  Country: US (occurrence: US)
  Receive Date: 20190628
  Receipt Date: 20190628
  Transmission Date: 20190711
  Serious: No
  Sender: FDA-Public Use
  Company Number: US-BAYER-2019-122788

PATIENT
  Sex: Female

DRUGS (1)
  1. CLARITIN [Suspect]
     Active Substance: LORATADINE
     Indication: RASH PRURITIC
     Dosage: 1 DF, QD
     Route: 065
     Dates: start: 20190625, end: 20190626

REACTIONS (5)
  - Feeling cold [Unknown]
  - Malaise [None]
  - Product use in unapproved indication [Unknown]
  - Nausea [Unknown]
  - Balance disorder [Unknown]

NARRATIVE: CASE EVENT DATE: 20190625
